FAERS Safety Report 6811317-5 (Version None)
Quarter: 2010Q2

REPORT INFORMATION
  Report Type: 
  Country: None (occurrence: None)
  Receive Date: 20100630
  Receipt Date: 20091125
  Transmission Date: 20101027
  Serious: No
  Sender: FDA-Public Use
  Company Number: US-AMGEN-KDL377209

PATIENT
  Sex: Male
  Weight: 90.8 kg

DRUGS (1)
  1. PROCRIT [Suspect]
     Indication: DRUG USE FOR UNKNOWN INDICATION
     Route: 058
     Dates: start: 20091103

REACTIONS (3)
  - HAEMOGLOBIN DECREASED [None]
  - TOOTH INFECTION [None]
  - UNDERDOSE [None]
